FAERS Safety Report 12377302 (Version 1)
Quarter: 2016Q2

REPORT INFORMATION
  Report Type: Report from Study
  Country: US (occurrence: US)
  Receive Date: 20160517
  Receipt Date: 20160517
  Transmission Date: 20160815
  Serious: No
  Sender: FDA-Public Use
  Company Number: US-MALLINCKRODT-T201505010

PATIENT
  Age: 85 Year
  Sex: Female
  Weight: 91 kg

DRUGS (3)
  1. REPOSITORY CORTICOTROPIN INJECTION [Suspect]
     Active Substance: CORTICOTROPIN
     Indication: RHEUMATOID ARTHRITIS
     Dosage: 80 UNITS/ML TWICE WEEKLY
     Route: 058
     Dates: start: 201506
  2. ORENCIA [Concomitant]
     Active Substance: ABATACEPT
  3. REPOSITORY CORTICOTROPIN INJECTION [Suspect]
     Active Substance: CORTICOTROPIN
     Dosage: 80 UNITS/ML ONCE WEEKLY
     Route: 065
     Dates: start: 201510

REACTIONS (3)
  - Acne [Not Recovered/Not Resolved]
  - Myalgia [Not Recovered/Not Resolved]
  - Bone pain [Not Recovered/Not Resolved]

NARRATIVE: CASE EVENT DATE: 20151012
